FAERS Safety Report 12866449 (Version 2)
Quarter: 2017Q3

REPORT INFORMATION
  Report Type: Spontaneous
  Country: US (occurrence: US)
  Receive Date: 20161020
  Receipt Date: 20170928
  Transmission Date: 20171127
  Serious: No
  Sender: FDA-Public Use
  Company Number: US-SA-2016SA105973

PATIENT
  Age: 58 Year
  Sex: Female

DRUGS (16)
  1. AUBAGIO [Suspect]
     Active Substance: TERIFLUNOMIDE
     Indication: MULTIPLE SCLEROSIS
     Route: 048
     Dates: start: 20160227
  2. VITAMIN C [Concomitant]
     Active Substance: ASCORBIC ACID
  3. COLESEVELAM [Concomitant]
     Active Substance: COLESEVELAM
  4. VITAMIN D [Concomitant]
     Active Substance: CHOLECALCIFEROL
  5. FISH OIL [Concomitant]
     Active Substance: FISH OIL
  6. BACTRIM [Concomitant]
     Active Substance: SULFAMETHOXAZOLE\TRIMETHOPRIM
  7. METROGEL [Concomitant]
     Active Substance: METRONIDAZOLE
  8. RESTASIS [Concomitant]
     Active Substance: CYCLOSPORINE
  9. AMBIEN [Concomitant]
     Active Substance: ZOLPIDEM TARTRATE
  10. EZETIMIBE. [Concomitant]
     Active Substance: EZETIMIBE
  11. TRAMADOL. [Concomitant]
     Active Substance: TRAMADOL
  12. CRESTOR [Concomitant]
     Active Substance: ROSUVASTATIN CALCIUM
  13. ASPIRIN. [Concomitant]
     Active Substance: ASPIRIN
  14. COQ10 [Concomitant]
     Active Substance: UBIDECARENONE
  15. VITAMIN E [Concomitant]
     Active Substance: .ALPHA.-TOCOPHEROL
  16. DARIFENACIN. [Concomitant]
     Active Substance: DARIFENACIN

REACTIONS (3)
  - Contusion [Unknown]
  - Condition aggravated [Unknown]
  - Diarrhoea [Unknown]

NARRATIVE: CASE EVENT DATE: 20160524
